FAERS Safety Report 18511220 (Version 1)
Quarter: 2020Q4

REPORT INFORMATION
  Report Type: Report from Study
  Country: DE (occurrence: AU)
  Receive Date: 20201117
  Receipt Date: 20201117
  Transmission Date: 20210114
  Serious: Yes (Other)
  Sender: FDA-Public Use
  Company Number: AU-ENDO PHARMACEUTICALS INC-2018-042155

PATIENT
  Age: 65 Year
  Sex: Male

DRUGS (9)
  1. AVEED [Suspect]
     Active Substance: TESTOSTERONE UNDECANOATE
     Dosage: 1000 MG, ONCE, W66
     Route: 030
     Dates: start: 20180409
  2. AVEED [Suspect]
     Active Substance: TESTOSTERONE UNDECANOATE
     Indication: BLOOD TESTOSTERONE DECREASED
     Dosage: 1000 MG, ONCE, W6
     Route: 030
     Dates: start: 20170124
  3. AVEED [Suspect]
     Active Substance: TESTOSTERONE UNDECANOATE
     Dosage: 1000 MG, ONCE, W18
     Route: 030
     Dates: start: 20170418
  4. AVEED [Suspect]
     Active Substance: TESTOSTERONE UNDECANOATE
     Dosage: 1000 MG, ONCE, W78
     Route: 030
     Dates: start: 20180619
  5. AVEED [Suspect]
     Active Substance: TESTOSTERONE UNDECANOATE
     Indication: DIABETES PROPHYLAXIS
     Dosage: 1000 MG, ONCE, BASELINE
     Route: 030
     Dates: start: 20161213
  6. AVEED [Suspect]
     Active Substance: TESTOSTERONE UNDECANOATE
     Dosage: 1000 MG, ONCE, W54
     Route: 030
     Dates: start: 20180108
  7. AVEED [Suspect]
     Active Substance: TESTOSTERONE UNDECANOATE
     Dosage: 1000 MG, ONCE, W42
     Route: 030
     Dates: start: 20171003
  8. AVEED [Suspect]
     Active Substance: TESTOSTERONE UNDECANOATE
     Dosage: 1000 MG, ONCE, W30
     Route: 030
     Dates: start: 20170711
  9. AVEED [Suspect]
     Active Substance: TESTOSTERONE UNDECANOATE
     Dosage: 1000 MG, ONCE, W90
     Route: 030
     Dates: start: 20180921

REACTIONS (1)
  - Urinary retention [Not Recovered/Not Resolved]

NARRATIVE: CASE EVENT DATE: 20180921
